FAERS Safety Report 19856544 (Version 1)
Quarter: 2021Q3

REPORT INFORMATION
  Report Type: Spontaneous
  Country: US (occurrence: US)
  Receive Date: 20210920
  Receipt Date: 20210920
  Transmission Date: 20211014
  Serious: Yes (Other)
  Sender: FDA-Public Use
  Company Number: US-BAYER-2021-212900

PATIENT
  Age: 91 Year
  Sex: Female

DRUGS (2)
  1. ALEVEX [Suspect]
     Active Substance: CAMPHOR (SYNTHETIC)\MENTHOL
     Indication: PAIN
     Dosage: UNK
     Route: 061
     Dates: start: 20210915, end: 20210915
  2. IBUPROFEN. [Concomitant]
     Active Substance: IBUPROFEN
     Dosage: UNK

REACTIONS (3)
  - Choking [Not Recovered/Not Resolved]
  - Dyspnoea [Not Recovered/Not Resolved]
  - Exposure via inhalation [Not Recovered/Not Resolved]

NARRATIVE: CASE EVENT DATE: 20210915
